FAERS Safety Report 8193245-9 (Version None)
Quarter: 2012Q1

REPORT INFORMATION
  Report Type: 
  Country: None (occurrence: None)
  Receive Date: 20120308
  Receipt Date: 20120228
  Transmission Date: 20120608
  Serious: Yes (Other)
  Sender: FDA-Public Use
  Company Number: US-SHIRE-ALL1-2012-01174

PATIENT
  Sex: Female
  Weight: 58.957 kg

DRUGS (2)
  1. AMPHETAMINE AND DEXTROAMPHETAMINE SALTS [Suspect]
     Indication: ATTENTION DEFICIT/HYPERACTIVITY DISORDER
     Dosage: UNK, UNKNOWN
     Route: 048
  2. KLONOPIN [Concomitant]
     Indication: PANIC ATTACK
     Dosage: 1-3 MG, AS REQ'D
     Route: 048

REACTIONS (2)
  - CHANGE IN SUSTAINED ATTENTION [None]
  - POST-TRAUMATIC STRESS DISORDER [None]
